FAERS Safety Report 4468433-5 (Version None)
Quarter: 2004Q4

REPORT INFORMATION
  Report Type: 
  Country: None (occurrence: None)
  Receive Date: 20041007
  Receipt Date: 20040927
  Transmission Date: 20050328
  Serious: Yes (Disabling)
  Sender: FDA-Public Use
  Company Number: PHFR2004GB03663

PATIENT
  Age: 44 Year
  Sex: 0

DRUGS (3)
  1. CLOZAPINE [Suspect]
     Indication: SCHIZOPHRENIA
     Dosage: 700 MG/DAY
     Route: 048
     Dates: start: 19940101, end: 20031001
  2. DIAZEPAM [Concomitant]
     Indication: ANXIETY
     Dosage: 10 MG/DAY
     Route: 048
     Dates: start: 19960101, end: 20031001
  3. TEMAZEPAM [Concomitant]
     Indication: INSOMNIA
     Dosage: 10 MG/DAY
     Route: 048
     Dates: start: 19960101, end: 20031001

REACTIONS (3)
  - DEMENTIA [None]
  - EPILEPSY [None]
  - MYOCLONUS [None]
